FAERS Safety Report 7584415-9 (Version None)
Quarter: 2011Q2

REPORT INFORMATION
  Report Type: 
  Country: None (occurrence: None)
  Receive Date: 20110630
  Receipt Date: 20100110
  Transmission Date: 20111010
  Serious: Yes (Death, Other)
  Sender: FDA-Public Use
  Company Number: US-BAYER-201010290NA

PATIENT
  Age: 39 Year
  Sex: Female
  Weight: 101.77 kg

DRUGS (16)
  1. LASIX [Concomitant]
     Dosage: 20 MG
     Route: 042
     Dates: start: 20070415
  2. ZYVOX [Concomitant]
     Dosage: 600 MG, BID
     Route: 042
     Dates: start: 20070422
  3. AZITHROMYCIN [Concomitant]
  4. ALBUMIN (HUMAN) [Concomitant]
     Dosage: 300 ML
     Route: 042
     Dates: start: 20070423, end: 20070423
  5. TRASYLOL [Suspect]
     Indication: BIOPSY LYMPH GLAND
  6. NORCURON [Concomitant]
     Dosage: 1 MG, EVERY 30 MINUTES, IF MORE THEN 6 TIMES IN 12 HOURS START DRIP
     Route: 042
     Dates: start: 20070414, end: 20070415
  7. TRASYLOL [Suspect]
     Indication: PRODUCT USED FOR UNKNOWN INDICATION
     Dosage: 1 ML, ONCE
     Route: 042
     Dates: start: 20070423, end: 20070423
  8. VANCOMYCIN [Concomitant]
     Dosage: PER VANCOMYCIN PROTOCOL
     Route: 042
     Dates: start: 20070414, end: 20070416
  9. TRASYLOL [Suspect]
     Indication: COX-MAZE PROCEDURE
     Dosage: 100 ML LOADING DOSE
     Route: 042
     Dates: start: 20070423, end: 20070423
  10. MANITOL [Concomitant]
     Dosage: 100 ML PRIME
     Route: 042
     Dates: start: 20070423
  11. DOPAMINE HCL [Concomitant]
     Dosage: 2 MICROGRAMS PER KG PER MINUTE
     Route: 042
     Dates: start: 20070423
  12. PROTAMINE SULFATE [Concomitant]
     Dosage: 500 MG, TOTAL
     Route: 042
     Dates: start: 20070423, end: 20070423
  13. CONTRAST MEDIA [Concomitant]
     Indication: CATHETERISATION CARDIAC
     Dosage: UNK
     Dates: start: 20070417
  14. INSULIN [Concomitant]
     Dosage: 4 TO 6 UNITS PER HOUR
     Route: 042
     Dates: start: 20070423, end: 20070423
  15. DOBUTAMINE HCL [Concomitant]
     Dosage: 2 MICROGRAMS PER KG PER MINUTE
     Route: 042
     Dates: start: 20070423, end: 20070423
  16. PACKED RED BLOOD CELLS [Concomitant]
     Dosage: 250 ML
     Route: 042
     Dates: start: 20070423, end: 20070423

REACTIONS (12)
  - UNEVALUABLE EVENT [None]
  - CEREBROVASCULAR ACCIDENT [None]
  - INJURY [None]
  - RENAL FAILURE [None]
  - DEPRESSION [None]
  - ANXIETY [None]
  - ANHEDONIA [None]
  - DEATH [None]
  - MYOCARDIAL INFARCTION [None]
  - PAIN [None]
  - RENAL INJURY [None]
  - FEAR [None]
